FAERS Safety Report 10405942 (Version 1)
Quarter: 2014Q3

REPORT INFORMATION
  Report Type: Spontaneous
  Country: US (occurrence: None)
  Receive Date: 20140821
  Receipt Date: 20140821
  Transmission Date: 20150326
  Serious: Yes (Other)
  Sender: FDA-Public Use
  Company Number: COL_17282_2014

PATIENT
  Sex: Male

DRUGS (2)
  1. COLGATE TOTAL ADVANCED CLEAN [Suspect]
     Active Substance: SODIUM FLUORIDE\TRICLOSAN
     Indication: PRODUCT USED FOR UNKNOWN INDICATION
     Dosage: SMALL HEAD TOOTHBRUSH/2-3 TIMES A DAY/ORAL
     Route: 048
  2. COLGATE OPTIC WHITE - SPARKLING MINT [Suspect]
     Active Substance: SODIUM MONOFLUOROPHOSPHATE
     Indication: PRODUCT USED FOR UNKNOWN INDICATION
     Dosage: SMALL HEAD TOOTHBRUSH/2-3 TIMES A DAY/ORAL
     Route: 048

REACTIONS (4)
  - Blood urine present [None]
  - Ureteric cancer [None]
  - Renal cancer [None]
  - Metastases to bone [None]

NARRATIVE: CASE EVENT DATE: 201404
